FAERS Safety Report 7027774-8 (Version None)
Quarter: 2010Q3

REPORT INFORMATION
  Report Type: 
  Country: None (occurrence: None)
  Receive Date: 20100903
  Receipt Date: 20100825
  Transmission Date: 20110219
  Serious: Yes (Life-Threatening, Hospitalization)
  Sender: FDA-Public Use
  Company Number: THYM-1001324

PATIENT
  Age: 60 Year
  Sex: Male
  Weight: 60 kg

DRUGS (8)
  1. THYMOGLOBULIN [Suspect]
     Indication: APLASTIC ANAEMIA
     Dosage: 200 MG, QD, INTRAVENOUS
     Route: 042
     Dates: start: 20090507, end: 20090511
  2. PREDNISOLONE [Concomitant]
  3. FLUCONAZOLE [Concomitant]
  4. SULFAMETOXAZOL MED TRIMETOPRIM (SULFAMETOXAZOLE, TRIMETHOPRIM) [Concomitant]
  5. ACYCLOVIR [Concomitant]
  6. CYCLOSPORINE [Concomitant]
  7. ALLOPURINOL [Concomitant]
  8. RABEPRAZOLE SODIUM [Concomitant]

REACTIONS (6)
  - BLOOD BILIRUBIN INCREASED [None]
  - BLOOD CREATININE INCREASED [None]
  - BLOOD POTASSIUM INCREASED [None]
  - BRONCHOPULMONARY ASPERGILLOSIS [None]
  - CONDITION AGGRAVATED [None]
  - HYPERTENSION [None]
